FAERS Safety Report 18209456 (Version 2)
Quarter: 2020Q3

REPORT INFORMATION
  Report Type: Report from Study
  Country: US (occurrence: US)
  Receive Date: 20200828
  Receipt Date: 20200917
  Transmission Date: 20201103
  Serious: Yes (Other)
  Sender: FDA-Public Use
  Company Number: US-GILEAD-2020-0492275

PATIENT
  Age: 65 Year
  Sex: Male
  Weight: 81 kg

DRUGS (9)
  1. CYCLOPHOSPHAMIDE. [Suspect]
     Active Substance: CYCLOPHOSPHAMIDE
     Indication: BONE MARROW CONDITIONING REGIMEN
     Dosage: 500 MG/M2, QD X 3 DAYS
     Route: 042
     Dates: start: 20180119, end: 20180121
  2. FOLVITE [FOLIC ACID] [Concomitant]
  3. VALTREX [Concomitant]
     Active Substance: VALACYCLOVIR HYDROCHLORIDE
  4. VITAMIN B COMPLEX [Concomitant]
     Active Substance: CYANOCOBALAMIN\DEXPANTHENOL\NIACINAMIDE\PYRIDOXINE HYDROCHLORIDE\RIBOFLAVIN 5^-PHOSPHATE SODIUM\THIAMINE HYDROCHLORIDE\VITAMIN B COMPLEX
  5. ARMOUR THYROID [Concomitant]
     Active Substance: THYROID, PORCINE
  6. FLUDARABINE [Suspect]
     Active Substance: FLUDARABINE PHOSPHATE
     Indication: BONE MARROW CONDITIONING REGIMEN
     Dosage: 30 MG/M2, QD X 3 DAYS
     Route: 042
     Dates: start: 20180119, end: 20180121
  7. MESNA. [Suspect]
     Active Substance: MESNA
     Indication: PROPHYLAXIS
     Dosage: 500 MG/M2, QD X 3 DAYS
     Route: 042
     Dates: start: 20180119, end: 20180121
  8. KTE?X19 [Suspect]
     Active Substance: AXICABTAGENE CILOLEUCEL
     Indication: MANTLE CELL LYMPHOMA REFRACTORY
     Dosage: 40 ML
     Route: 042
     Dates: start: 20180124, end: 20180124
  9. VITAMIN D3 [Concomitant]
     Active Substance: CHOLECALCIFEROL

REACTIONS (1)
  - Acute myeloid leukaemia [Not Recovered/Not Resolved]

NARRATIVE: CASE EVENT DATE: 20200821
